FAERS Safety Report 24287388 (Version 1)
Quarter: 2024Q3

REPORT INFORMATION
  Report Type: Spontaneous
  Country: US (occurrence: None)
  Receive Date: 20240904
  Receipt Date: 20240904
  Transmission Date: 20241016
  Serious: Yes (Other)
  Sender: Public
  Company Number: None

PATIENT
  Age: 69 Year
  Sex: Female
  Weight: 41.28 kg

DRUGS (1)
  1. GAMUNEX-C [Suspect]
     Active Substance: HUMAN IMMUNOGLOBULIN G
     Indication: Dermatomyositis
     Route: 041
     Dates: start: 20240731, end: 20240829

REACTIONS (2)
  - Jugular vein thrombosis [None]
  - Therapy interrupted [None]

NARRATIVE: CASE EVENT DATE: 20240823
